FAERS Safety Report 7494256-9 (Version None)
Quarter: 2011Q2

REPORT INFORMATION
  Report Type: 
  Country: None (occurrence: None)
  Receive Date: 20110520
  Receipt Date: 20110519
  Transmission Date: 20111010
  Serious: Yes (Death)
  Sender: FDA-Public Use
  Company Number: JP-SANOFI-AVENTIS-2011SA027775

PATIENT
  Weight: 60 kg

DRUGS (1)
  1. TAXOTERE [Suspect]

REACTIONS (1)
  - CARDIOVASCULAR DISORDER [None]
